FAERS Safety Report 11694108 (Version 1)
Quarter: 2015Q4

REPORT INFORMATION
  Report Type: Spontaneous
  Country: US (occurrence: US)
  Receive Date: 20151103
  Receipt Date: 20151103
  Transmission Date: 20160304
  Serious: No
  Sender: FDA-Public Use
  Company Number: US-SA-2015SA067498

PATIENT
  Sex: Female

DRUGS (1)
  1. UNISOM SLEEPTABS [Suspect]
     Active Substance: DOXYLAMINE SUCCINATE
     Indication: INSOMNIA
     Dosage: STARTED OFF TAKING 1 TABLET THEN 2 TABLETS THEN 3?TABLETS THEN 4 TABLETS
     Route: 065

REACTIONS (2)
  - Intentional overdose [Unknown]
  - Drug ineffective [Unknown]
